FAERS Safety Report 8480748-2 (Version None)
Quarter: 2012Q3

REPORT INFORMATION
  Report Type: 
  Country: None (occurrence: None)
  Receive Date: 20120702
  Receipt Date: 20120621
  Transmission Date: 20120928
  Serious: Yes (Death)
  Sender: FDA-Public Use
  Company Number: US-ELI_LILLY_AND_COMPANY-US201108008487

PATIENT
  Sex: Male
  Weight: 42.63 kg

DRUGS (2)
  1. PROZAC [Suspect]
     Indication: DEPRESSION
     Dosage: 10 MG, QD
  2. PROZAC WEEKLY [Suspect]
     Indication: DEPRESSION
     Dosage: 1 DF, WEEKLY (1/W)
     Dates: start: 20020111

REACTIONS (2)
  - COMPLETED SUICIDE [None]
  - PERIPHERAL COLDNESS [None]
